FAERS Safety Report 8474942-4 (Version None)
Quarter: 2012Q2

REPORT INFORMATION
  Report Type: 
  Country: None (occurrence: None)
  Receive Date: 20120628
  Receipt Date: 20120622
  Transmission Date: 20120825
  Serious: Yes (Hospitalization)
  Sender: FDA-Public Use
  Company Number: PHHO2012DE003128

PATIENT
  Sex: Female
  Weight: 93 kg

DRUGS (4)
  1. BLINDED NO TREATMENT RECEIVED [Suspect]
     Indication: TUBEROUS SCLEROSIS
     Dosage: DOUBLE BLINDED
     Route: 048
     Dates: start: 20101213, end: 20110909
  2. PLACEBO [Suspect]
     Indication: TUBEROUS SCLEROSIS
     Dosage: DOUBLE BLINDED
     Route: 048
     Dates: start: 20101213, end: 20110909
  3. AFINITOR [Suspect]
     Indication: TUBEROUS SCLEROSIS
     Dosage: DOUBLE BLINDED
     Route: 048
     Dates: start: 20101213, end: 20110909
  4. EVEROLIMUS [Suspect]
     Indication: TUBEROUS SCLEROSIS
     Dosage: 5 MG, QD
     Dates: start: 20110927, end: 20111128

REACTIONS (1)
  - ERYSIPELAS [None]
